FAERS Safety Report 14601010 (Version 2)
Quarter: 2018Q4

REPORT INFORMATION
  Report Type: Spontaneous
  Country: IT (occurrence: IT)
  Receive Date: 20180305
  Receipt Date: 20181217
  Transmission Date: 20190204
  Serious: Yes (Death, Hospitalization, Other)
  Sender: FDA-Public Use
  Company Number: PHHY2018IT035440

PATIENT
  Age: 44 Year
  Sex: Male

DRUGS (1)
  1. METFORMIN HYDROCHLORIDE. [Suspect]
     Active Substance: METFORMIN HYDROCHLORIDE
     Indication: PRODUCT USED FOR UNKNOWN INDICATION
     Dosage: 3000 MG, QD
     Route: 065

REACTIONS (5)
  - Confusional state [Fatal]
  - Shock [Fatal]
  - Acute kidney injury [Fatal]
  - Diarrhoea [Fatal]
  - Lactic acidosis [Fatal]
